FAERS Safety Report 11143595 (Version 1)
Quarter: 2015Q2

REPORT INFORMATION
  Report Type: Spontaneous
  Country: US (occurrence: US)
  Receive Date: 20150526
  Receipt Date: 20150526
  Transmission Date: 20150821
  Serious: No
  Sender: FDA-Public Use
  Company Number: US-009507513-1505USA005743

PATIENT
  Sex: Male

DRUGS (1)
  1. BELSOMRA [Suspect]
     Active Substance: SUVOREXANT
     Indication: INSOMNIA
     Dosage: 20 MG (ONE TABLET), QD
     Route: 048

REACTIONS (3)
  - Product quality issue [Unknown]
  - Dysgeusia [Recovering/Resolving]
  - Somnolence [Recovering/Resolving]
